FAERS Safety Report 7331359-3 (Version None)
Quarter: 2011Q1

REPORT INFORMATION
  Report Type: 
  Country: None (occurrence: None)
  Receive Date: 20110304
  Receipt Date: 20100924
  Transmission Date: 20110831
  Serious: Yes (Hospitalization, Other)
  Sender: FDA-Public Use
  Company Number: US-BAYER-201016363NA

PATIENT
  Sex: Female
  Weight: 61 kg

DRUGS (11)
  1. OXYBUTYNIN [Concomitant]
     Dosage: 3.9 MG/24HR
  2. PHENAZOPYRIDINE HCL TAB [Concomitant]
     Route: 048
  3. PHENAZOPYRIDINE HCL TAB [Concomitant]
     Route: 048
  4. YASMIN [Suspect]
     Indication: PRODUCT USED FOR UNKNOWN INDICATION
     Route: 048
     Dates: start: 20080801
  5. OCELLA [Suspect]
     Route: 048
     Dates: start: 20080801, end: 20090201
  6. LEVONORGESTREL + ETHINYL ESTRADIOL [Concomitant]
     Indication: MENORRHAGIA
  7. IBUPROFEN [Concomitant]
     Indication: MYALGIA
  8. LEVONORGESTREL + ETHINYL ESTRADIOL [Concomitant]
     Indication: PELVIC PAIN
     Dates: start: 20090301
  9. YAZ [Suspect]
     Route: 048
     Dates: start: 20080801
  10. LEVONORGESTREL + ETHINYL ESTRADIOL [Concomitant]
     Indication: VAGINAL HAEMORRHAGE
  11. MEDROXYPROGESTERONE [Concomitant]
     Dosage: 150 MG/ML
     Route: 030

REACTIONS (9)
  - DYSPNOEA [None]
  - HYPERHIDROSIS [None]
  - MENTAL DISORDER [None]
  - CHEST DISCOMFORT [None]
  - TACHYPNOEA [None]
  - DIZZINESS [None]
  - TACHYCARDIA [None]
  - PULMONARY EMBOLISM [None]
  - PRESYNCOPE [None]
